FAERS Safety Report 10094666 (Version 1)
Quarter: 2014Q2

REPORT INFORMATION
  Report Type: Spontaneous
  Country: US (occurrence: US)
  Receive Date: 20140422
  Receipt Date: 20140422
  Transmission Date: 20141212
  Serious: No
  Sender: FDA-Public Use
  Company Number: US-009507513-1403USA013175

PATIENT
  Age: 53 Year
  Sex: Female
  Weight: 65.31 kg

DRUGS (11)
  1. PEGINTRON [Suspect]
     Dosage: 120 MICROGRAM, QW
     Route: 058
  2. VITAMINS (UNSPECIFIED) [Concomitant]
     Route: 048
  3. CITALOPRAM [Concomitant]
     Dosage: 10 MG, UNK
     Route: 048
  4. OMEPRAZOLE [Concomitant]
     Dosage: 10 MG, UNK
     Route: 048
  5. TRUVADA [Concomitant]
     Route: 048
  6. LACTULOSE [Concomitant]
     Dosage: 20 GM/30
     Route: 048
  7. ISENTRESS [Concomitant]
     Dosage: 400 MG, UNK
     Route: 048
  8. IRON (UNSPECIFIED) [Concomitant]
     Route: 048
  9. VICODIN [Concomitant]
     Route: 048
  10. TIZANIDINE HYDROCHLORIDE [Concomitant]
     Dosage: 6 MG, UNK
     Route: 048
  11. CYANOCOBALAMIN (+) LEVOMEFOLATE CALCIUM (+) PYRIDOXINE (+) RIBOFLAVIN [Concomitant]
     Route: 048

REACTIONS (5)
  - Chromaturia [Unknown]
  - Vision blurred [Unknown]
  - Pyrexia [Unknown]
  - Headache [Unknown]
  - Spleen disorder [Unknown]
